FAERS Safety Report 17739841 (Version 5)
Quarter: 2020Q3

REPORT INFORMATION
  Report Type: Spontaneous
  Country: US (occurrence: US)
  Receive Date: 20200504
  Receipt Date: 20200918
  Transmission Date: 20201102
  Serious: Yes (Death, Other)
  Sender: FDA-Public Use
  Company Number: US-SHIRE-US202015249

PATIENT
  Age: 61 Year
  Sex: Female

DRUGS (8)
  1. GATTEX [Suspect]
     Active Substance: TEDUGLUTIDE\WATER
     Dosage: 0.2180 UNIT UNKNOWN, 1X/DAY:QD
     Route: 058
     Dates: start: 20200402
  2. GATTEX [Suspect]
     Active Substance: TEDUGLUTIDE\WATER
     Indication: PRODUCT USED FOR UNKNOWN INDICATION
     Dosage: 0.218 UNIT UNKNOWN, 1X/DAY:QD
     Route: 058
     Dates: start: 20200219
  3. GATTEX [Suspect]
     Active Substance: TEDUGLUTIDE\WATER
     Dosage: 0.2180 UNIT UNKNOWN, 1X/DAY:QD
     Route: 058
     Dates: start: 20200402
  4. GATTEX [Suspect]
     Active Substance: TEDUGLUTIDE\WATER
     Indication: PRODUCT USED FOR UNKNOWN INDICATION
     Dosage: 0.218 UNIT UNKNOWN, 1X/DAY:QD
     Route: 058
     Dates: start: 20200219
  5. GATTEX [Suspect]
     Active Substance: TEDUGLUTIDE\WATER
     Dosage: 0.2180 UNIT UNKNOWN, 1X/DAY:QD
     Route: 058
     Dates: start: 20200402
  6. GATTEX [Suspect]
     Active Substance: TEDUGLUTIDE\WATER
     Dosage: 0.2180 UNIT UNKNOWN, 1X/DAY:QD
     Route: 058
     Dates: start: 20200402
  7. GATTEX [Suspect]
     Active Substance: TEDUGLUTIDE\WATER
     Indication: PRODUCT USED FOR UNKNOWN INDICATION
     Dosage: 0.218 UNIT UNKNOWN, 1X/DAY:QD
     Route: 058
     Dates: start: 20200219
  8. GATTEX [Suspect]
     Active Substance: TEDUGLUTIDE\WATER
     Indication: PRODUCT USED FOR UNKNOWN INDICATION
     Dosage: 0.218 UNIT UNKNOWN, 1X/DAY:QD
     Route: 058
     Dates: start: 20200219

REACTIONS (7)
  - Neoplasm malignant [Fatal]
  - Malaise [Unknown]
  - Urinary tract infection [Not Recovered/Not Resolved]
  - Abdominal pain upper [Not Recovered/Not Resolved]
  - Weight decreased [Not Recovered/Not Resolved]
  - Stoma complication [Not Recovered/Not Resolved]
  - Vomiting [Recovered/Resolved]

NARRATIVE: CASE EVENT DATE: 20200403
